FAERS Safety Report 6734169-0 (Version None)
Quarter: 2010Q2

REPORT INFORMATION
  Report Type: 
  Country: None (occurrence: None)
  Receive Date: 20100520
  Receipt Date: 20100513
  Transmission Date: 20101027
  Serious: Yes (Death)
  Sender: FDA-Public Use
  Company Number: US-CELGENEUS-163-21880-10042022

PATIENT
  Sex: Male

DRUGS (5)
  1. REVLIMID [Suspect]
     Indication: MULTIPLE MYELOMA
     Route: 048
     Dates: start: 20100301
  2. REVLIMID [Suspect]
     Route: 048
     Dates: start: 20080901
  3. REVLIMID [Suspect]
     Route: 048
     Dates: start: 20080801
  4. REVLIMID [Suspect]
     Dosage: 25MG-20MG
     Route: 048
     Dates: start: 20071201
  5. THALOMID [Suspect]
     Indication: MULTIPLE MYELOMA
     Dosage: 50-100 MG
     Route: 048
     Dates: start: 20100201, end: 20100301

REACTIONS (3)
  - MULTIPLE MYELOMA [None]
  - PANCYTOPENIA [None]
  - PNEUMONIA [None]
